FAERS Safety Report 24121331 (Version 4)
Quarter: 2024Q3

REPORT INFORMATION
  Report Type: Spontaneous
  Country: BR (occurrence: None)
  Receive Date: 20240722
  Receipt Date: 20240822
  Transmission Date: 20241016
  Serious: Yes (Life-Threatening, Other)
  Sender: ASTRAZENECA
  Company Number: 2024A139182

PATIENT
  Age: 45 Year
  Sex: Male
  Weight: 83 kg

DRUGS (14)
  1. DAPAGLIFLOZIN [Suspect]
     Active Substance: DAPAGLIFLOZIN
     Indication: Diabetes mellitus
     Dosage: AFTER LUNCH
     Route: 048
     Dates: start: 20240608
  2. DAPAGLIFLOZIN [Suspect]
     Active Substance: DAPAGLIFLOZIN
     Indication: Diabetes mellitus
     Dosage: ONCE AFTER LUNCH
     Route: 048
  3. DAPAGLIFLOZIN [Suspect]
     Active Substance: DAPAGLIFLOZIN
     Indication: Diabetes mellitus
     Dosage: 1 TIME AT LUNCH
     Route: 048
     Dates: start: 202311
  4. ROSUVASTATIN [Suspect]
     Active Substance: ROSUVASTATIN\ROSUVASTATIN CALCIUM
     Indication: Blood cholesterol
     Route: 048
  5. ROSUVASTATIN [Suspect]
     Active Substance: ROSUVASTATIN\ROSUVASTATIN CALCIUM
     Indication: Blood triglycerides
     Route: 048
  6. JANUMET XR [Concomitant]
     Active Substance: METFORMIN HYDROCHLORIDE\SITAGLIPTIN PHOSPHATE
     Indication: Diabetes mellitus
     Dosage: 50/1000MG
  7. GLICLAZIDE [Concomitant]
     Active Substance: GLICLAZIDE
     Indication: Diabetes mellitus
     Dosage: 2 TABLETS BEFORE BREAKFAST
  8. ATORVASTATIN CALCIUM [Concomitant]
     Active Substance: ATORVASTATIN CALCIUM
     Indication: Diabetes mellitus
  9. METFORMIN HYDROCHLORIDE [Concomitant]
     Active Substance: METFORMIN HYDROCHLORIDE
     Indication: Diabetes mellitus
     Dosage: AFTER BREAKFAST
  10. METFORMIN HYDROCHLORIDE [Concomitant]
     Active Substance: METFORMIN HYDROCHLORIDE
     Indication: Diabetes mellitus
  11. METFORMIN [Concomitant]
     Active Substance: METFORMIN HYDROCHLORIDE
     Indication: Diabetes mellitus
  12. JANUMET [Concomitant]
     Active Substance: METFORMIN HYDROCHLORIDE\SITAGLIPTIN PHOSPHATE
  13. DIAMICRON [Concomitant]
  14. RYBELSUS [Concomitant]
     Active Substance: SEMAGLUTIDE
     Dosage: FASTING

REACTIONS (20)
  - Diabetes mellitus [Not Recovered/Not Resolved]
  - Polyneuropathy [Unknown]
  - Ejaculation disorder [Not Recovered/Not Resolved]
  - Semen discolouration [Not Recovered/Not Resolved]
  - Product use issue [Unknown]
  - Urine abnormality [Not Recovered/Not Resolved]
  - Erectile dysfunction [Not Recovered/Not Resolved]
  - Chromaturia [Recovered/Resolved]
  - Drug effect less than expected [Unknown]
  - Weight decreased [Unknown]
  - Blood creatine increased [Unknown]
  - Asthenia [Unknown]
  - Dizziness [Unknown]
  - Breath odour [Unknown]
  - Intentional product misuse [Unknown]
  - Nervousness [Unknown]
  - Insomnia [Unknown]
  - Hernia [Unknown]
  - Hepatic steatosis [Unknown]
  - Chest discomfort [Unknown]

NARRATIVE: CASE EVENT DATE: 20231101
